FAERS Safety Report 7772273-9 (Version None)
Quarter: 2011Q3

REPORT INFORMATION
  Report Type: 
  Country: None (occurrence: None)
  Receive Date: 20110922
  Receipt Date: 20101129
  Transmission Date: 20111222
  Serious: No
  Sender: FDA-Public Use
  Company Number: US-ASTRAZENECA-2010SE43914

PATIENT
  Age: 36 Year
  Sex: Female

DRUGS (1)
  1. SEROQUEL XR [Suspect]
     Indication: MAJOR DEPRESSION
     Route: 048
     Dates: start: 20100901

REACTIONS (6)
  - AGEUSIA [None]
  - SWOLLEN TONGUE [None]
  - SLEEP DISORDER [None]
  - INCORRECT DOSE ADMINISTERED [None]
  - HYPOAESTHESIA ORAL [None]
  - WRONG TECHNIQUE IN DRUG USAGE PROCESS [None]
